FAERS Safety Report 5125317-7 (Version None)
Quarter: 2006Q4

REPORT INFORMATION
  Report Type: 
  Country: None (occurrence: None)
  Receive Date: 20061006
  Receipt Date: 20060922
  Transmission Date: 20070319
  Serious: Yes (Death, Hospitalization, Other)
  Sender: FDA-Public Use
  Company Number: 2006119511

PATIENT
  Sex: Male

DRUGS (2)
  1. CELEBREX [Suspect]
     Dosage: ORAL
     Route: 048
     Dates: start: 20000701, end: 20050201
  2. VIOXX [Suspect]
     Dosage: ORAL
     Route: 048
     Dates: start: 19990520

REACTIONS (2)
  - DEEP VEIN THROMBOSIS [None]
  - UNEVALUABLE EVENT [None]
